FAERS Safety Report 26124457 (Version 2)
Quarter: 2025Q4

REPORT INFORMATION
  Report Type: Spontaneous
  Country: EU (occurrence: EU)
  Receive Date: 20251205
  Receipt Date: 20251214
  Transmission Date: 20260119
  Serious: Yes (Death, Hospitalization, Other)
  Sender: ZYDUS PHARM
  Company Number: EU-KERNPHARMA-202502877

PATIENT

DRUGS (3)
  1. OLANZAPINE [Suspect]
     Active Substance: OLANZAPINE
     Indication: Product used for unknown indication
     Dosage: UNK
     Route: 065
  2. RIVASTIGMINE [Suspect]
     Active Substance: RIVASTIGMINE
     Indication: Product used for unknown indication
     Dosage: UNK
     Route: 065
  3. QUETIAPINE [Suspect]
     Active Substance: QUETIAPINE
     Indication: Product used for unknown indication
     Dosage: UNK
     Route: 065

REACTIONS (9)
  - Agitation [Fatal]
  - Condition aggravated [Fatal]
  - Fall [Fatal]
  - Food refusal [Fatal]
  - Gastrointestinal haemorrhage [Fatal]
  - Hyperkalaemia [Fatal]
  - Multiple organ dysfunction syndrome [Fatal]
  - Somnolence [Fatal]
  - Drug ineffective [Unknown]
